FAERS Safety Report 14980666 (Version 3)
Quarter: 2019Q2

REPORT INFORMATION
  Report Type: Report from Study
  Country: US (occurrence: US)
  Receive Date: 20180606
  Receipt Date: 20190501
  Transmission Date: 20190711
  Serious: Yes (Other)
  Sender: FDA-Public Use
  Company Number: US-PFIZER INC-2018224987

PATIENT
  Age: 32 Year
  Sex: Female

DRUGS (23)
  1. CANNABIDIOL [Interacting]
     Active Substance: CANNABIDIOL
     Dosage: 20 MG/KG, DAILY (ON DAY 114)
  2. CANNABIDIOL [Interacting]
     Active Substance: CANNABIDIOL
     Dosage: 20 MG/KG, DAILY (ON DAY 164)
  3. CANNABIDIOL [Interacting]
     Active Substance: CANNABIDIOL
     Dosage: 20 MG/KG, DAILY (ON DAY 255)
  4. ESCITALOPRAM [Concomitant]
     Active Substance: ESCITALOPRAM OXALATE
     Dosage: UNK
  5. TACROLIMUS. [Interacting]
     Active Substance: TACROLIMUS
     Dosage: 3 MG, 2X/DAY (ON DAY 133 AND 164)
  6. CANNABIDIOL [Interacting]
     Active Substance: CANNABIDIOL
     Dosage: 20 MG/KG, DAILY (ON DAY 131)
  7. TACROLIMUS. [Interacting]
     Active Substance: TACROLIMUS
     Dosage: 5 MG, 2X/DAY (ON DAY 114)
  8. LAMOTRIGINE. [Concomitant]
     Active Substance: LAMOTRIGINE
     Dosage: UNK
  9. TRAZODONE [Concomitant]
     Active Substance: TRAZODONE HYDROCHLORIDE
     Dosage: UNK
  10. TACROLIMUS. [Interacting]
     Active Substance: TACROLIMUS
     Dosage: 5 MG, 2X/DAY (ON DAY 124)
  11. TACROLIMUS. [Interacting]
     Active Substance: TACROLIMUS
     Dosage: 0.5 MG, 2X/DAY (DOSE WAS REDUCED REPEATEDLY WHILE RECEIVING CBD,A 10-FOLD REDUCTION)
  12. RUFINAMIDE [Concomitant]
     Active Substance: RUFINAMIDE
     Dosage: UNK
  13. CANNABIDIOL [Interacting]
     Active Substance: CANNABIDIOL
     Dosage: 20 MG/KG, DAILY (ON DAY 175)
  14. METHSUXIMIDE [Concomitant]
     Active Substance: METHSUXIMIDE
     Dosage: UNK
  15. GABAPENTIN. [Concomitant]
     Active Substance: GABAPENTIN
     Dosage: UNK
  16. TACROLIMUS. [Interacting]
     Active Substance: TACROLIMUS
     Dosage: 5 MG, 2X/DAY (ON DAY 67)
  17. CANNABIDIOL [Interacting]
     Active Substance: CANNABIDIOL
     Dosage: 20 MG/KG, DAILY (2000 MG GIVEN IN DIVIDED DOSES TWICE DAILY)
  18. QUETIAPINE. [Concomitant]
     Active Substance: QUETIAPINE
     Dosage: UNK
  19. CANNABIDIOL [Interacting]
     Active Substance: CANNABIDIOL
     Indication: EPILEPSY
     Dosage: UNK
  20. CANNABIDIOL [Interacting]
     Active Substance: CANNABIDIOL
     Dosage: 25 MG/KG, UNK (GRADUALLY INCREASED TO A MAXIMUM DOSE AGAIN)
  21. CANNABIDIOL [Interacting]
     Active Substance: CANNABIDIOL
     Dosage: 20 MG/KG, DAILY (ON DAY 124)
  22. TACROLIMUS. [Suspect]
     Active Substance: TACROLIMUS
     Indication: TUBULOINTERSTITIAL NEPHRITIS
     Dosage: 5 MG, 2X/DAY (FOR A YEAR)
  23. TACROLIMUS. [Interacting]
     Active Substance: TACROLIMUS
     Dosage: 5 MG, 2X/DAY (ON DAY 15)

REACTIONS (3)
  - Toxicity to various agents [Unknown]
  - Drug interaction [Unknown]
  - Blood creatinine increased [Unknown]
